FAERS Safety Report 15202226 (Version 1)
Quarter: 2018Q4

REPORT INFORMATION
  Report Type: Spontaneous
  Country: US (occurrence: US)
  Receive Date: 20180726
  Receipt Date: 20180726
  Transmission Date: 20190204
  Serious: Yes (Other)
  Sender: FDA-Public Use
  Company Number: US-BAUSCH-BL-2018-017628

PATIENT
  Sex: Female

DRUGS (1)
  1. UP AND UP LUBRICANT EYE DROPS PRESERVATIVE FREE (PROPYLENE GLYCOL) [Suspect]
     Active Substance: PROPYLENE GLYCOL
     Indication: PRODUCT USED FOR UNKNOWN INDICATION
     Dosage: ONLY ONE TIME, IN ONE EYE
     Route: 047

REACTIONS (1)
  - Anaphylactic reaction [Not Recovered/Not Resolved]

NARRATIVE: CASE EVENT DATE: 201804
